FAERS Safety Report 5565348-6 (Version None)
Quarter: 2007Q4

REPORT INFORMATION
  Report Type: 
  Country: None (occurrence: None)
  Receive Date: 20071218
  Receipt Date: 20040121
  Transmission Date: 20080405
  Serious: Yes (Death)
  Sender: FDA-Public Use
  Company Number: IT-ROCHE-356528

PATIENT
  Age: 35 Year
  Sex: Female

DRUGS (5)
  1. GANCICLOVIR SODIUM [Suspect]
     Indication: CYTOMEGALOVIRUS INFECTION
     Route: 042
     Dates: start: 20000601
  2. GANCICLOVIR SODIUM [Suspect]
     Route: 042
  3. OCTREOTIDE ACETATE [Suspect]
     Indication: CYTOMEGALOVIRUS INFECTION
     Route: 058
     Dates: start: 20000601
  4. FLUCONAZOLE [Concomitant]
  5. OMEPRAZOLE [Concomitant]

REACTIONS (3)
  - RASH [None]
  - RENAL FAILURE [None]
  - SPLINTER HAEMORRHAGES [None]
